FAERS Safety Report 7377025-X (Version None)
Quarter: 2011Q1

REPORT INFORMATION
  Report Type: 
  Country: None (occurrence: None)
  Receive Date: 20110328
  Receipt Date: 20110315
  Transmission Date: 20110831
  Serious: No
  Sender: FDA-Public Use
  Company Number: US-BIOGENIDEC-2011BI001379

PATIENT
  Sex: Female

DRUGS (1)
  1. TYSABRI [Suspect]
     Indication: MULTIPLE SCLEROSIS
     Route: 042
     Dates: start: 20081006

REACTIONS (6)
  - WHITE BLOOD CELL COUNT INCREASED [None]
  - FALL [None]
  - SINUSITIS [None]
  - LACERATION [None]
  - BALANCE DISORDER [None]
  - SPLEEN DISORDER [None]
